FAERS Safety Report 8918074 (Version 1)
Quarter: 2012Q4

REPORT INFORMATION
  Report Type: 
  Country: US (occurrence: US)
  Receive Date: 20121120
  Receipt Date: 20121120
  Transmission Date: 20130627
  Serious: No
  Sender: FDA-Public Use
  Company Number: US-ASTRAZENECA-2012SE14765

PATIENT
  Age: 42 Year
  Sex: Male
  Weight: 77.1 kg

DRUGS (9)
  1. NEXIUM [Suspect]
     Indication: GASTROOESOPHAGEAL REFLUX DISEASE
     Route: 048
  2. SEROQUEL [Suspect]
     Indication: DEPRESSION
     Route: 048
  3. SEROQUEL [Suspect]
     Indication: SLEEP DISORDER
     Route: 048
  4. HYDROCODONE [Concomitant]
  5. FLEXORIL [Concomitant]
  6. IBUPROFEN [Concomitant]
  7. TRAMADOL [Concomitant]
  8. CYMBALTA [Concomitant]
  9. XANAX [Concomitant]

REACTIONS (4)
  - Hypoaesthesia [Unknown]
  - Anxiety [Unknown]
  - Gastric ulcer [Unknown]
  - Off label use [Unknown]
